FAERS Safety Report 21850077 (Version 1)
Quarter: 2023Q1

REPORT INFORMATION
  Report Type: Spontaneous
  Country: US (occurrence: US)
  Receive Date: 20230111
  Receipt Date: 20230111
  Transmission Date: 20230418
  Serious: No
  Sender: FDA-Public Use
  Company Number: US-SA-SAC20230111000180

PATIENT
  Age: 66 Year
  Sex: Female

DRUGS (13)
  1. DUPIXENT [Suspect]
     Active Substance: DUPILUMAB
     Indication: Dermatitis atopic
     Dosage: 300 MG, QOW
     Route: 058
  2. VITAMIN B-1 [THIAMINE HYDROCHLORIDE] [Concomitant]
  3. IBUPROFEN [Concomitant]
     Active Substance: IBUPROFEN
  4. ATORVASTATIN CALCIUM [Concomitant]
     Active Substance: ATORVASTATIN CALCIUM
  5. DOXEPIN HCL [Concomitant]
     Active Substance: DOXEPIN HYDROCHLORIDE
  6. ASPIRIN [Concomitant]
     Active Substance: ASPIRIN
  7. .ALPHA.-TOCOPHEROL ACETATE [Concomitant]
     Active Substance: .ALPHA.-TOCOPHEROL ACETATE
  8. ZINC [Concomitant]
     Active Substance: ZINC
  9. VITAMIN D NOS [Concomitant]
     Active Substance: VITAMIN D NOS
  10. VITAMIN C [Concomitant]
     Active Substance: ASCORBIC ACID
  11. FLONASE ALLERGY RELIEF [Concomitant]
     Active Substance: FLUTICASONE PROPIONATE
  12. LORATADINE D [Concomitant]
     Active Substance: LORATADINE\PSEUDOEPHEDRINE SULFATE
     Dosage: 24H
  13. VITAMINS NOS [Concomitant]
     Active Substance: VITAMINS

REACTIONS (2)
  - Urinary tract infection [Unknown]
  - Fungal infection [Unknown]

NARRATIVE: CASE EVENT DATE: 20221201
